FAERS Safety Report 9656729 (Version 2)
Quarter: 2014Q2

REPORT INFORMATION
  Report Type: Spontaneous
  Country: GB (occurrence: None)
  Receive Date: 20131022
  Receipt Date: 20140429
  Transmission Date: 20141212
  Serious: Yes (Other)
  Sender: FDA-Public Use
  Company Number: BTG00086

PATIENT
  Age: 69 Year
  Sex: Female

DRUGS (6)
  1. DIGIFAB [Suspect]
     Indication: PRODUCT USED FOR UNKNOWN INDICATION
  2. DIGOXIN (DIGOXIN) [Suspect]
     Indication: ATRIAL FIBRILLATION
     Route: 048
  3. ZELBORAF [Suspect]
     Indication: METASTATIC MALIGNANT MELANOMA
     Dosage: 240 MG AT MORNING AND 480 MG AT EVENING
     Route: 048
     Dates: start: 20121120
  4. ASPIRIN (ACETYLSALICYLIC ACID) [Concomitant]
  5. ATORVASTATIN (ATORVASTATIN CALCIUM) [Concomitant]
  6. METOPROLOL (METOPROLOL TARTRATE) [Concomitant]

REACTIONS (3)
  - Cardioactive drug level increased [None]
  - Arrhythmia [None]
  - Drug interaction [None]
